FAERS Safety Report 24739034 (Version 1)
Quarter: 2024Q4

REPORT INFORMATION
  Report Type: Report from Study
  Country: US (occurrence: US)
  Receive Date: 20241216
  Receipt Date: 20241216
  Transmission Date: 20250115
  Serious: Yes (Other)
  Sender: MERCK
  Company Number: US-009507513-2407USA005046

PATIENT
  Sex: Female
  Weight: 82.54 kg

DRUGS (8)
  1. SOTATERCEPT [Suspect]
     Active Substance: SOTATERCEPT
     Indication: Pulmonary arterial hypertension
     Dosage: 0.5 MILLILITER, Q3W, STRENGHT: 45 MILLIGRAM
     Route: 058
     Dates: start: 202406, end: 202407
  2. WINREVAIR [Suspect]
     Active Substance: SOTATERCEPT-CSRK
     Indication: Pulmonary arterial hypertension
     Dosage: STRENGHT: 60 MG KIT, 1.1 ML EVERY 3 WEEKS (Q3W)
     Route: 058
     Dates: start: 202407
  3. WINREVAIR [Suspect]
     Active Substance: SOTATERCEPT-CSRK
     Indication: Pulmonary arterial hypertension
     Dosage: 1.1 MILLILITER, Q3W
     Route: 058
     Dates: start: 202407
  4. WINREVAIR [Suspect]
     Active Substance: SOTATERCEPT-CSRK
     Indication: Pulmonary arterial hypertension
     Dosage: 1.1 MILLILITER, Q3W
     Route: 058
     Dates: start: 202407
  5. WINREVAIR [Suspect]
     Active Substance: SOTATERCEPT-CSRK
     Dosage: 1.1 MILLILITER, Q3W, STRENGTH: 60 MILLIGRAM
     Route: 058
     Dates: start: 202406
  6. REMODULIN [Suspect]
     Active Substance: TREPROSTINIL
     Dosage: UNK
     Dates: start: 202407
  7. ACETAMINOPHEN [Concomitant]
     Active Substance: ACETAMINOPHEN
  8. UPTRAVI [Concomitant]
     Active Substance: SELEXIPAG
     Dosage: UNK

REACTIONS (19)
  - Ascites [Not Recovered/Not Resolved]
  - Dyspnoea exertional [Unknown]
  - Oedema [Not Recovered/Not Resolved]
  - Anxiety [Unknown]
  - Weight increased [Unknown]
  - Injection site vesicles [Not Recovered/Not Resolved]
  - Injection site vesicles [Not Recovered/Not Resolved]
  - Injection site erythema [Unknown]
  - Injection site inflammation [Unknown]
  - Injection site irritation [Not Recovered/Not Resolved]
  - Injection site pruritus [Not Recovered/Not Resolved]
  - Headache [Recovered/Resolved]
  - Injection site pruritus [Not Recovered/Not Resolved]
  - Dermatitis contact [Not Recovered/Not Resolved]
  - Injection site irritation [Not Recovered/Not Resolved]
  - Injection site rash [Not Recovered/Not Resolved]
  - Skin infection [Not Recovered/Not Resolved]
  - Pain [Not Recovered/Not Resolved]
  - Epistaxis [Recovered/Resolved]

NARRATIVE: CASE EVENT DATE: 20240101
